FAERS Safety Report 22524887 (Version 2)
Quarter: 2023Q2

REPORT INFORMATION
  Report Type: Spontaneous
  Country: DE (occurrence: DE)
  Receive Date: 20230606
  Receipt Date: 20230614
  Transmission Date: 20230721
  Serious: Yes (Hospitalization, Other)
  Sender: FDA-Public Use
  Company Number: None

PATIENT
  Age: 77 Year
  Sex: Female

DRUGS (19)
  1. PANTOPRAZOLE [Interacting]
     Active Substance: PANTOPRAZOLE
     Indication: Product used for unknown indication
     Dosage: 1-0-0
     Route: 065
     Dates: start: 20230323, end: 20230509
  2. SULFAMETHOXAZOLE\TRIMETHOPRIM [Interacting]
     Active Substance: SULFAMETHOXAZOLE\TRIMETHOPRIM
     Indication: Product used for unknown indication
     Dosage: 1-0-1
     Route: 065
     Dates: start: 20230426, end: 20230507
  3. METAMIZOL [Interacting]
     Active Substance: METAMIZOLE SODIUM
     Indication: Pain
     Dosage: ONLY SINGLE DOSES FOR PAIN ARE GIVEN AS A SHORT ?INFUSION
     Route: 065
     Dates: start: 20230409, end: 20230507
  4. METHOTREXATE [Interacting]
     Active Substance: METHOTREXATE
     Indication: Product used for unknown indication
     Dosage: 1X
     Route: 065
     Dates: start: 20230414, end: 20230505
  5. PIPERACILLIN AND TAZOBACTAM [Interacting]
     Active Substance: PIPERACILLIN SODIUM\TAZOBACTAM SODIUM
     Indication: Product used for unknown indication
     Dosage: 1-1-1-1
     Route: 065
     Dates: start: 20230426, end: 20230508
  6. APIXABAN [Concomitant]
     Active Substance: APIXABAN
     Indication: Product used for unknown indication
     Dosage: 1-0-1
     Route: 065
     Dates: start: 20230426, end: 20230508
  7. BISOPROLOL [Concomitant]
     Active Substance: BISOPROLOL
     Indication: Product used for unknown indication
     Dosage: 1-0-0
     Route: 065
     Dates: start: 20230323, end: 20230509
  8. Dronabinol 2.5 [Concomitant]
     Indication: Product used for unknown indication
     Dosage: IN THE MORNING AND EVENING
     Route: 065
     Dates: start: 20230421, end: 20230509
  9. Levodopa comp 100 mg/ 25 mg reatrd [Concomitant]
     Indication: Product used for unknown indication
     Dosage: 0-0-1
     Route: 065
     Dates: start: 20230328, end: 20230509
  10. Levodopa comp 200 mg/50 mg [Concomitant]
     Indication: Product used for unknown indication
     Dosage: 1-1-0-0
     Route: 065
     Dates: start: 20230419, end: 20230509
  11. LEVOTHYROXINE [Concomitant]
     Active Substance: LEVOTHYROXINE
     Indication: Product used for unknown indication
     Dosage: 1-0-0
     Route: 065
     Dates: start: 20230417, end: 20230509
  12. LORAZEPAM [Concomitant]
     Active Substance: LORAZEPAM
     Indication: Product used for unknown indication
     Dosage: 0-0-0-1, AS NECESSARY
     Route: 065
     Dates: start: 20230327, end: 20230507
  13. Macrogol Beutel [Concomitant]
     Indication: Product used for unknown indication
     Dosage: 1-0-0
     Route: 065
     Dates: start: 20230325, end: 20230505
  14. MIRTAZAPINE [Concomitant]
     Active Substance: MIRTAZAPINE
     Indication: Product used for unknown indication
     Dosage: 0-0-1
     Route: 065
     Dates: start: 20230420, end: 20230509
  15. ONDANSETRON [Concomitant]
     Active Substance: ONDANSETRON
     Indication: Product used for unknown indication
     Dosage: 4MG SHORT INFUSION IF NECESSARY
     Route: 065
     Dates: start: 20230404, end: 20230509
  16. Piritramid 7.5 mg [Concomitant]
     Indication: Pain
     Dosage: IF NECESSARY 7.5MG SHORT INFUSION (ONLY SINGLE ?DOSES IN CASE OF PAIN)
     Route: 065
     Dates: start: 20230405, end: 20230509
  17. PREDNISOLONE [Concomitant]
     Active Substance: PREDNISOLONE
     Indication: Product used for unknown indication
     Dosage: 0-1/2-0
     Route: 065
     Dates: start: 20230323, end: 20230509
  18. SERTRALINE HYDROCHLORIDE [Concomitant]
     Active Substance: SERTRALINE HYDROCHLORIDE
     Indication: Product used for unknown indication
     Dosage: 1-0-0
     Route: 065
     Dates: start: 20230409, end: 20230509
  19. SPIRONOLACTONE [Concomitant]
     Active Substance: SPIRONOLACTONE
     Indication: Product used for unknown indication
     Dosage: 1-0-0
     Route: 065
     Dates: start: 20230418, end: 20230508

REACTIONS (3)
  - Leukopenia [Not Recovered/Not Resolved]
  - Drug interaction [Unknown]
  - Thrombocytopenia [Not Recovered/Not Resolved]

NARRATIVE: CASE EVENT DATE: 20230504
